FAERS Safety Report 12616221 (Version 3)
Quarter: 2016Q3

REPORT INFORMATION
  Report Type: Report from Study
  Country: BR (occurrence: BR)
  Receive Date: 20160802
  Receipt Date: 20160928
  Transmission Date: 20161109
  Serious: Yes (Hospitalization)
  Sender: FDA-Public Use
  Company Number: PHHY2015BR070260

PATIENT
  Age: 28 Year
  Sex: Male
  Weight: 56 kg

DRUGS (3)
  1. EXJADE [Suspect]
     Active Substance: DEFERASIROX
     Dosage: 20 MG/KG, QD (4 DF OF 250 MG)
     Route: 048
     Dates: end: 2014
  2. EXJADE [Suspect]
     Active Substance: DEFERASIROX
     Indication: SICKLE CELL ANAEMIA
     Dosage: 20 MG/KG, QD (2 DF OF 500 MG)
     Route: 048
     Dates: start: 2011
  3. HIDROXIUREA [Concomitant]
     Active Substance: HYDROXYUREA
     Indication: SICKLE CELL ANAEMIA
     Dosage: 2 DF, QD
     Route: 048
     Dates: start: 2010

REACTIONS (8)
  - Pleural effusion [Unknown]
  - Pulmonary oedema [Unknown]
  - Weight decreased [Unknown]
  - Sickle cell anaemia with crisis [Unknown]
  - Acute chest syndrome [Unknown]
  - Hepatomegaly [Unknown]
  - Ascites [Unknown]
  - Pneumonia [Unknown]

NARRATIVE: CASE EVENT DATE: 20160710
